FAERS Safety Report 18013454 (Version 2)
Quarter: 2020Q3

REPORT INFORMATION
  Report Type: Report from Study
  Country: None (occurrence: CO)
  Receive Date: 20200713
  Receipt Date: 20200715
  Transmission Date: 20201103
  Serious: Yes (Hospitalization)
  Sender: FDA-Public Use
  Company Number: CO-ABBVIE-20K-036-3478851-00

PATIENT
  Sex: Female
  Weight: 70 kg

DRUGS (3)
  1. HUMIRA [Suspect]
     Active Substance: ADALIMUMAB
     Indication: PSORIATIC ARTHROPATHY
     Route: 058
  2. HUMIRA [Suspect]
     Active Substance: ADALIMUMAB
     Indication: PRODUCT USED FOR UNKNOWN INDICATION
     Route: 058
     Dates: start: 20090508
  3. INSULIN [Concomitant]
     Active Substance: INSULIN NOS
     Indication: DIABETES MELLITUS
     Route: 058

REACTIONS (11)
  - Pterygium [Recovered/Resolved]
  - Ocular procedural complication [Unknown]
  - Dizziness [Recovering/Resolving]
  - Pulmonary pain [Recovering/Resolving]
  - Eye pain [Recovering/Resolving]
  - Blood glucose increased [Recovered/Resolved]
  - Influenza like illness [Recovered/Resolved]
  - Ear pain [Recovered/Resolved]
  - Eye infection fungal [Recovered/Resolved]
  - Eye infection bacterial [Recovered/Resolved]
  - Ear pain [Recovering/Resolving]

NARRATIVE: CASE EVENT DATE: 2017
